FAERS Safety Report 18767983 (Version 1)
Quarter: 2021Q1

REPORT INFORMATION
  Report Type: Spontaneous
  Country: US (occurrence: US)
  Receive Date: 20210120
  Receipt Date: 20210120
  Transmission Date: 20210419
  Serious: Yes (Hospitalization)
  Sender: FDA-Public Use
  Company Number: None

PATIENT
  Age: 49 Year
  Sex: Male
  Weight: 109 kg

DRUGS (3)
  1. DICLOFENAC (DICLOFENAC NA 75MG TAB, EC) [Suspect]
     Active Substance: DICLOFENAC
     Indication: OSTEOARTHRITIS
  2. OMEPRAZOLE (OMEPRAZOLE 40MG CAP, SA) [Suspect]
     Active Substance: OMEPRAZOLE
     Indication: DUODENAL ULCER
     Route: 048
     Dates: start: 20190613, end: 20201014
  3. DICLOFENAC (DICLOFENAC NA 75MG TAB, EC) [Suspect]
     Active Substance: DICLOFENAC
     Indication: ARTHRALGIA
     Route: 048
     Dates: start: 20200529, end: 20200927

REACTIONS (11)
  - Abdominal pain lower [None]
  - IgA nephropathy [None]
  - Vasculitis [None]
  - Mesenteritis [None]
  - Gastritis [None]
  - Abdominal pain upper [None]
  - Tubulointerstitial nephritis [None]
  - Porphyria acute [None]
  - Therapy cessation [None]
  - Duodenal ulcer [None]
  - Erosive duodenitis [None]

NARRATIVE: CASE EVENT DATE: 20200924
